FAERS Safety Report 7828942-5 (Version None)
Quarter: 2011Q4

REPORT INFORMATION
  Report Type: 
  Country: None (occurrence: None)
  Receive Date: 20111020
  Receipt Date: 20111007
  Transmission Date: 20120403
  Serious: Yes (Hospitalization)
  Sender: FDA-Public Use
  Company Number: US-ELI_LILLY_AND_COMPANY-US201110002323

PATIENT
  Sex: Female

DRUGS (6)
  1. SYNTHROID [Concomitant]
  2. SIMVASTATIN [Concomitant]
  3. ANTIHYPERTENSIVES [Concomitant]
  4. LISINOPRIL [Concomitant]
  5. FORTEO [Suspect]
     Dosage: 20 UG, QD
     Route: 065
  6. FORTEO [Suspect]
     Dosage: 20 UG, QD
     Route: 065

REACTIONS (5)
  - SCAB [None]
  - RETCHING [None]
  - HERPES ZOSTER [None]
  - BLOOD PRESSURE ABNORMAL [None]
  - PAIN [None]
